FAERS Safety Report 25268608 (Version 1)
Quarter: 2025Q2

REPORT INFORMATION
  Report Type: Spontaneous
  Country: US (occurrence: None)
  Receive Date: 20250504
  Receipt Date: 20250504
  Transmission Date: 20250717
  Serious: No
  Sender: FDA-CTU
  Company Number: None

PATIENT
  Age: 73 Year
  Sex: Male
  Weight: 68.4 kg

DRUGS (5)
  1. AMYVID [Suspect]
     Active Substance: FLORBETAPIR F-18
     Indication: Amyloidosis
     Dates: start: 20250501, end: 20250501
  2. BUPROPION [Concomitant]
     Active Substance: BUPROPION
  3. VITAMINS [Concomitant]
     Active Substance: VITAMINS
  4. VITAMIN C [Concomitant]
     Active Substance: ASCORBIC ACID
  5. VITAMIN B12 [Concomitant]
     Active Substance: CYANOCOBALAMIN

REACTIONS (8)
  - Headache [None]
  - Dizziness [None]
  - Balance disorder [None]
  - Flushing [None]
  - Fatigue [None]
  - Disturbance in attention [None]
  - Blood pressure increased [None]
  - Injection related reaction [None]

NARRATIVE: CASE EVENT DATE: 20250501
